FAERS Safety Report 16435804 (Version 2)
Quarter: 2019Q3

REPORT INFORMATION
  Report Type: Report from Study
  Country: DE (occurrence: DE)
  Receive Date: 20190614
  Receipt Date: 20190904
  Transmission Date: 20191004
  Serious: Yes (Life-Threatening)
  Sender: FDA-Public Use
  Company Number: PHHO2019DE006337

PATIENT
  Age: 52 Year
  Sex: Male
  Weight: 107 kg

DRUGS (5)
  1. CARMEN [Concomitant]
     Indication: HYPERTENSION
     Dosage: 20 MG, BID
     Route: 065
     Dates: start: 2006
  2. IBUPROFEN. [Concomitant]
     Active Substance: IBUPROFEN
     Indication: TENDON RUPTURE
     Dosage: 600 MG, PRN
     Route: 065
     Dates: start: 20190419
  3. BISOPROLOL [Concomitant]
     Active Substance: BISOPROLOL
     Indication: HYPERTENSION
     Dosage: 5 MG, BID
     Route: 065
     Dates: start: 2016
  4. AIN457 [Suspect]
     Active Substance: SECUKINUMAB
     Indication: PSORIASIS
     Dosage: 300 MG, QW
     Route: 058
     Dates: start: 20190507
  5. TORASEMID [Concomitant]
     Active Substance: TORSEMIDE
     Indication: HYPERTENSION
     Dosage: 10 MG, QD
     Route: 065
     Dates: start: 2016

REACTIONS (1)
  - Pulmonary embolism [Unknown]

NARRATIVE: CASE EVENT DATE: 20190527
